FAERS Safety Report 5570875-1 (Version None)
Quarter: 2007Q4

REPORT INFORMATION
  Report Type: 
  Country: None (occurrence: None)
  Receive Date: 20071221
  Receipt Date: 20071218
  Transmission Date: 20080405
  Serious: Yes (Life-Threatening)
  Sender: FDA-Public Use
  Company Number: FR-AVENTIS-200714058FR

PATIENT
  Age: 75 Year
  Sex: Male

DRUGS (9)
  1. RIFADIN [Suspect]
     Dates: start: 20071026, end: 20071101
  2. RIFADIN [Suspect]
     Dates: start: 20071101
  3. TIENAM [Suspect]
     Route: 042
     Dates: start: 20071109, end: 20071122
  4. ZOLOFT [Suspect]
     Route: 048
     Dates: end: 20071121
  5. LASIX [Concomitant]
     Indication: DRUG USE FOR UNKNOWN INDICATION
  6. ASPEGIC 1000 [Concomitant]
     Indication: DRUG USE FOR UNKNOWN INDICATION
     Route: 048
  7. CALCIPARINE [Concomitant]
     Indication: DRUG USE FOR UNKNOWN INDICATION
     Route: 058
  8. LEVOTHYROX [Concomitant]
     Indication: DRUG USE FOR UNKNOWN INDICATION
     Route: 048
  9. MOPRAL [Concomitant]
     Indication: DRUG USE FOR UNKNOWN INDICATION

REACTIONS (2)
  - CONVULSION [None]
  - MALAISE [None]
